FAERS Safety Report 15672950 (Version 1)
Quarter: 2018Q4

REPORT INFORMATION
  Report Type: Report from Study
  Country: US (occurrence: US)
  Receive Date: 20181129
  Receipt Date: 20181129
  Transmission Date: 20190205
  Serious: No
  Sender: FDA-Public Use
  Company Number: US-TESARO-US-2018TSO03432

PATIENT
  Age: 73 Year
  Sex: Female

DRUGS (1)
  1. ZEJULA [Suspect]
     Active Substance: NIRAPARIB
     Indication: OVARIAN CANCER
     Dosage: 100 MG, DAILY
     Route: 048
     Dates: start: 20180627, end: 20181113

REACTIONS (11)
  - Decreased appetite [Recovering/Resolving]
  - Anxiety [Recovering/Resolving]
  - Night sweats [Recovering/Resolving]
  - Menopausal symptoms [Recovering/Resolving]
  - Abdominal pain upper [Recovering/Resolving]
  - Urine output decreased [Recovering/Resolving]
  - Fatigue [Recovering/Resolving]
  - Intentional underdose [Unknown]
  - Malaise [Recovering/Resolving]
  - Urinary incontinence [Recovering/Resolving]
  - Weight decreased [Recovering/Resolving]

NARRATIVE: CASE EVENT DATE: 2018
